FAERS Safety Report 7840464 (Version 2)
Quarter: 2014Q3

REPORT INFORMATION
  Report Type: Spontaneous
  Country: US (occurrence: US)
  Receive Date: 20110304
  Receipt Date: 20140806
  Transmission Date: 20150326
  Serious: Yes (Life-Threatening, Hospitalization)
  Sender: FDA-Public Use
  Company Number: US-BAYER-2011-019835

PATIENT
  Age: 42 Year
  Sex: Female
  Weight: 115.65 kg

DRUGS (15)
  1. YAZ [Suspect]
     Active Substance: DROSPIRENONE\ETHINYL ESTRADIOL
     Indication: CONTRACEPTION
     Dosage: UNK
     Route: 048
     Dates: start: 200802, end: 200905
  2. MORPHINE [Concomitant]
     Active Substance: MORPHINE
  3. HYDROCHLOROTHIAZIDE. [Concomitant]
     Active Substance: HYDROCHLOROTHIAZIDE
  4. ZOCOR [Concomitant]
     Active Substance: SIMVASTATIN
  5. BENZODIAZEPINE [Concomitant]
     Active Substance: BENZODIAZEPINE
  6. AMITRIPTYLINE [Concomitant]
     Active Substance: AMITRIPTYLINE
     Dosage: 25 MG, UNK
     Route: 048
     Dates: start: 20080609, end: 20090513
  7. TRAMADOL [Concomitant]
     Active Substance: TRAMADOL
     Indication: HEADACHE
     Dosage: 50 MG, UNK
     Route: 048
     Dates: start: 20080609, end: 20090423
  8. ZOFRAN [Concomitant]
     Active Substance: ONDANSETRON HYDROCHLORIDE
  9. ATIVAN [Concomitant]
     Active Substance: LORAZEPAM
  10. DILANTIN [Concomitant]
     Active Substance: PHENYTOIN
     Indication: GENERALISED TONIC-CLONIC SEIZURE
  11. METOPROLOL [Concomitant]
     Active Substance: METOPROLOL
     Indication: BLOOD PRESSURE MANAGEMENT
     Dosage: 50 MG, UNK
     Route: 048
     Dates: start: 20080630, end: 20090513
  12. CLONAZEPAM. [Concomitant]
     Active Substance: CLONAZEPAM
     Dosage: 0.5 MG, UNK
     Route: 048
     Dates: start: 20080630, end: 20090423
  13. ZOLOFT [Concomitant]
     Active Substance: SERTRALINE HYDROCHLORIDE
     Indication: DEPRESSION
     Dosage: 100 MG, UNK
     Route: 048
     Dates: start: 20080522, end: 20090513
  14. METOPROLOL [Concomitant]
     Active Substance: METOPROLOL
     Indication: BLOOD PRESSURE MANAGEMENT
  15. PHENYTOIN. [Concomitant]
     Active Substance: PHENYTOIN
     Indication: GENERALISED TONIC-CLONIC SEIZURE

REACTIONS (17)
  - Cerebral venous thrombosis [None]
  - Emotional distress [None]
  - Generalised tonic-clonic seizure [None]
  - Injury [None]
  - Headache [None]
  - General physical health deterioration [None]
  - Vertigo [None]
  - Quality of life decreased [None]
  - Electroencephalogram abnormal [None]
  - Pain [None]
  - Cerebrovascular accident [None]
  - Fatigue [None]
  - Bradyphrenia [None]
  - Impaired work ability [None]
  - Cerebral infarction [None]
  - Anxiety [None]
  - Vision blurred [None]

NARRATIVE: CASE EVENT DATE: 200905
